FAERS Safety Report 6191240-2 (Version None)
Quarter: 2009Q2

REPORT INFORMATION
  Report Type: 
  Country: None (occurrence: None)
  Receive Date: 20090513
  Receipt Date: 20090513
  Transmission Date: 20091009
  Serious: Yes (Other)
  Sender: FDA-Public Use
  Company Number: None

PATIENT
  Age: 61 Year
  Sex: Female
  Weight: 58.9676 kg

DRUGS (3)
  1. SIMAVASTATIN [Suspect]
     Indication: BLOOD CHOLESTEROL
     Dosage: 40MG ONCE DAILY BY MOUTH
     Route: 048
     Dates: start: 20080701
  2. SIMAVASTATIN [Suspect]
     Indication: BLOOD CHOLESTEROL
     Dosage: 40MG ONCE DAILY BY MOUTH
     Route: 048
     Dates: start: 20081001
  3. SIMAVASTATIN [Suspect]
     Dosage: 40MG ONCE DAILY
     Dates: start: 20090401

REACTIONS (2)
  - DRUG HYPERSENSITIVITY [None]
  - INFLUENZA LIKE ILLNESS [None]
